FAERS Safety Report 23426490 (Version 1)
Quarter: 2024Q1

REPORT INFORMATION
  Report Type: Spontaneous
  Country: US (occurrence: None)
  Receive Date: 20240119
  Receipt Date: 20240119
  Transmission Date: 20240410
  Serious: Yes (Other)
  Sender: FDA-Public Use
  Company Number: None

PATIENT
  Age: 70 Year
  Sex: Female
  Weight: 54.43 kg

DRUGS (2)
  1. HERBALS\TETRAHYDROCANNABINOL UNSPECIFIED [Suspect]
     Active Substance: HERBALS\TETRAHYDROCANNABINOL UNSPECIFIED
     Indication: Anxiety
     Dosage: FREQUENCY : ONCE;?
     Route: 048
     Dates: start: 20240108
  2. LISINOPRIL [Concomitant]
     Active Substance: LISINOPRIL

REACTIONS (6)
  - Confusional state [None]
  - Disorientation [None]
  - Dry mouth [None]
  - Oral discomfort [None]
  - Paraesthesia oral [None]
  - Somnolence [None]

NARRATIVE: CASE EVENT DATE: 20240108
